FAERS Safety Report 8817423 (Version 3)
Quarter: 2012Q4

REPORT INFORMATION
  Report Type: 
  Country: US (occurrence: US)
  Receive Date: 20121002
  Receipt Date: 20121220
  Transmission Date: 20130627
  Serious: Yes (Hospitalization)
  Sender: FDA-Public Use
  Company Number: US-ELI_LILLY_AND_COMPANY-US201209006664

PATIENT
  Sex: Male

DRUGS (12)
  1. FORTEO [Suspect]
     Indication: OSTEOPOROSIS
     Dosage: 20 ug, qd
     Route: 058
     Dates: start: 20120508
  2. SODIUM BICARBONATE [Concomitant]
     Dosage: 650 DF, tid
  3. ANDROGEL [Concomitant]
  4. VITAMIN D [Concomitant]
     Dosage: 2000 DF, qd
  5. CARDURA [Concomitant]
     Dosage: 4 mg, qd
  6. LASIX [Concomitant]
     Dosage: 20 mg, qd
  7. COZAAR [Concomitant]
     Dosage: 100 DF, qd
  8. MYFORTIC [Concomitant]
     Dosage: 340 DF, bid
  9. NIACIN [Concomitant]
     Dosage: 500 DF, bid
  10. RAPAMUNE [Concomitant]
     Dosage: 1 mg, qd
  11. SIMVASTATIN [Concomitant]
     Dosage: 40 mg, qd
  12. AMBIEN [Concomitant]
     Dosage: 10 mg, prn

REACTIONS (2)
  - Liver abscess [Recovered/Resolved]
  - Escherichia sepsis [Recovered/Resolved]
